FAERS Safety Report 7078287-9 (Version None)
Quarter: 2010Q4

REPORT INFORMATION
  Report Type: 
  Country: None (occurrence: None)
  Receive Date: 20101101
  Receipt Date: 20101101
  Transmission Date: 20110411
  Serious: Yes (Other)
  Sender: FDA-Public Use
  Company Number: None

PATIENT
  Age: 19 Year
  Sex: Female
  Weight: 77.1115 kg

DRUGS (2)
  1. METOPROLOL TARTRATE [Suspect]
     Indication: AUTONOMIC NERVOUS SYSTEM IMBALANCE
     Dosage: 1 TABLET 2 TIMES A DAY PO
     Route: 048
     Dates: start: 20090809, end: 20100125
  2. METOPROLOL TARTRATE [Suspect]
     Indication: HYPERTENSION
     Dosage: 1 TABLET 2 TIMES A DAY PO
     Route: 048
     Dates: start: 20090809, end: 20100125

REACTIONS (2)
  - NERVOUS SYSTEM DISORDER [None]
  - TREMOR [None]
